FAERS Safety Report 25221276 (Version 1)
Quarter: 2025Q2

REPORT INFORMATION
  Report Type: Spontaneous
  Country: DE (occurrence: DE)
  Receive Date: 20250421
  Receipt Date: 20250421
  Transmission Date: 20250716
  Serious: Yes (Hospitalization, Other)
  Sender: ASCEND THERAPEUTICS US, LLC
  Company Number: DE-Ascend Therapeutics US, LLC-2175284

PATIENT
  Age: 58 Year
  Sex: Female

DRUGS (6)
  1. ESTROGEL [Suspect]
     Active Substance: ESTRADIOL
     Indication: Menopausal symptoms
     Dates: start: 20250318, end: 20250326
  2. ESTROGEL [Suspect]
     Active Substance: ESTRADIOL
     Indication: Hot flush
  3. ESTROGEL [Suspect]
     Active Substance: ESTRADIOL
     Indication: Tendon pain
  4. ESTROGEL [Suspect]
     Active Substance: ESTRADIOL
     Indication: Myalgia
  5. ESTRADIOL [Suspect]
     Active Substance: ESTRADIOL
     Dates: start: 20250318, end: 20250326
  6. PROGESTERONE [Suspect]
     Active Substance: PROGESTERONE

REACTIONS (3)
  - Syncope [Recovered/Resolved]
  - Epilepsy [Recovered/Resolved]
  - Aphasia [Recovered/Resolved]

NARRATIVE: CASE EVENT DATE: 20250326
